FAERS Safety Report 4589325-7 (Version None)
Quarter: 2005Q1

REPORT INFORMATION
  Report Type: 
  Country: None (occurrence: None)
  Receive Date: 20050216
  Receipt Date: 20050202
  Transmission Date: 20050727
  Serious: Yes (Hospitalization)
  Sender: FDA-Public Use
  Company Number: US_0411108227

PATIENT
  Age: 70 Year
  Sex: Male
  Weight: 83 kg

DRUGS (9)
  1. HUMATROPE [Suspect]
     Indication: BLOOD GROWTH HORMONE DECREASED
     Dosage: 0.2 MG DAY
     Dates: start: 19980811
  2. HYDROCHLOROTHIAZIDE [Concomitant]
  3. PREDNISONE [Concomitant]
  4. SIMVASTATIN [Concomitant]
  5. VITAMIN E (HERBAL OIL NOS) [Concomitant]
  6. SYNTHROID [Concomitant]
  7. GEMFIBROZIL [Concomitant]
  8. MULTI-VITAMIN [Concomitant]
  9. ASPIRIN [Concomitant]

REACTIONS (11)
  - ANGIOPATHY [None]
  - ARTERIOSCLEROSIS [None]
  - BUNDLE BRANCH BLOCK RIGHT [None]
  - CEREBRAL ATROPHY [None]
  - CEREBRAL HAEMORRHAGE [None]
  - DYSARTHRIA [None]
  - HYPOAESTHESIA [None]
  - ISCHAEMIC STROKE [None]
  - MICROANGIOPATHY [None]
  - NUCLEAR MAGNETIC RESONANCE IMAGING BRAIN ABNORMAL [None]
  - SINUS BRADYCARDIA [None]
